FAERS Safety Report 17712506 (Version 5)
Quarter: 2022Q1

REPORT INFORMATION
  Report Type: Spontaneous
  Country: US (occurrence: US)
  Receive Date: 20200427
  Receipt Date: 20220208
  Transmission Date: 20220423
  Serious: Yes (Death, Hospitalization, Other)
  Sender: FDA-Public Use
  Company Number: US-PFIZER INC-2020166191

PATIENT
  Age: 82 Year
  Sex: Male
  Weight: 86.36 kg

DRUGS (4)
  1. VYNDAMAX [Suspect]
     Active Substance: TAFAMIDIS
     Indication: Amyloidosis
     Dosage: 61 MG, 1X/DAY
     Route: 048
     Dates: end: 20200408
  2. VYNDAMAX [Suspect]
     Active Substance: TAFAMIDIS
     Dosage: 61 MG
     Route: 048
  3. SPIRONOLACTONE [Concomitant]
     Active Substance: SPIRONOLACTONE
     Indication: Amyloidosis
     Dosage: 25 MG, 1X/DAY
  4. TORSEMIDE [Concomitant]
     Active Substance: TORSEMIDE
     Indication: Amyloidosis
     Dosage: 20 MG, 2X/DAY

REACTIONS (5)
  - Death [Fatal]
  - Laryngeal cancer [Unknown]
  - Recurrent cancer [Unknown]
  - Off label use [Unknown]
  - Wound [Unknown]

NARRATIVE: CASE EVENT DATE: 20200320
